FAERS Safety Report 24609124 (Version 1)
Quarter: 2024Q4

REPORT INFORMATION
  Report Type: Spontaneous
  Country: CA (occurrence: CA)
  Receive Date: 20241112
  Receipt Date: 20241112
  Transmission Date: 20250114
  Serious: Yes (Death, Other)
  Sender: BRISTOL-MYERS SQUIBB COMPANY
  Company Number: CA-BRISTOL-MYERS SQUIBB COMPANY-2024-176758

PATIENT
  Age: 40 Year
  Sex: Female

DRUGS (384)
  1. ORENCIA [Suspect]
     Active Substance: ABATACEPT
     Indication: Rheumatoid arthritis
     Route: 058
  2. ORENCIA [Suspect]
     Active Substance: ABATACEPT
     Indication: Rheumatoid arthritis
     Route: 042
  3. ORENCIA [Suspect]
     Active Substance: ABATACEPT
     Route: 042
  4. TRIAMCINOLONE ACETONIDE [Suspect]
     Active Substance: TRIAMCINOLONE ACETONIDE
     Indication: Rheumatoid arthritis
     Route: 013
  5. ORENCIA [Suspect]
     Active Substance: ABATACEPT
     Indication: Rheumatoid arthritis
  6. ORENCIA [Suspect]
     Active Substance: ABATACEPT
  7. ORENCIA [Suspect]
     Active Substance: ABATACEPT
  8. ACETAMINOPHEN [Concomitant]
     Active Substance: ACETAMINOPHEN
     Indication: Rheumatoid arthritis
  9. ACETAMINOPHEN [Concomitant]
     Active Substance: ACETAMINOPHEN
  10. ACETAMINOPHEN [Concomitant]
     Active Substance: ACETAMINOPHEN
  11. ACETAMINOPHEN [Concomitant]
     Active Substance: ACETAMINOPHEN
  12. ACETAMINOPHEN [Concomitant]
     Active Substance: ACETAMINOPHEN
  13. ACETAMINOPHEN [Concomitant]
     Active Substance: ACETAMINOPHEN
  14. ACTEMRA [Concomitant]
     Active Substance: TOCILIZUMAB
     Indication: Rheumatoid arthritis
     Route: 061
  15. ACTEMRA [Concomitant]
     Active Substance: TOCILIZUMAB
     Route: 042
  16. ACTEMRA [Concomitant]
     Active Substance: TOCILIZUMAB
     Route: 016
  17. ACTEMRA [Concomitant]
     Active Substance: TOCILIZUMAB
     Route: 058
  18. ACTEMRA [Concomitant]
     Active Substance: TOCILIZUMAB
     Route: 042
  19. ACTEMRA [Concomitant]
     Active Substance: TOCILIZUMAB
     Route: 042
  20. ACTEMRA [Concomitant]
     Active Substance: TOCILIZUMAB
     Route: 058
  21. ACTEMRA [Concomitant]
     Active Substance: TOCILIZUMAB
  22. ACTEMRA [Concomitant]
     Active Substance: TOCILIZUMAB
     Route: 058
  23. ACTEMRA [Concomitant]
     Active Substance: TOCILIZUMAB
     Route: 058
  24. ACTEMRA [Concomitant]
     Active Substance: TOCILIZUMAB
  25. ACTEMRA [Concomitant]
     Active Substance: TOCILIZUMAB
     Route: 058
  26. ACTEMRA [Concomitant]
     Active Substance: TOCILIZUMAB
     Route: 058
  27. ACTEMRA [Concomitant]
     Active Substance: TOCILIZUMAB
     Route: 042
  28. ACTEMRA [Concomitant]
     Active Substance: TOCILIZUMAB
     Route: 042
  29. ACTEMRA [Concomitant]
     Active Substance: TOCILIZUMAB
     Route: 042
  30. ACTEMRA [Concomitant]
     Active Substance: TOCILIZUMAB
  31. ACTEMRA [Concomitant]
     Active Substance: TOCILIZUMAB
     Route: 058
  32. ADALIMUMAB [Concomitant]
     Active Substance: ADALIMUMAB
     Indication: Rheumatoid arthritis
     Route: 058
  33. ADALIMUMAB [Concomitant]
     Active Substance: ADALIMUMAB
     Route: 058
  34. ADALIMUMAB [Concomitant]
     Active Substance: ADALIMUMAB
     Route: 058
  35. AIMOVIG [Concomitant]
     Active Substance: ERENUMAB-AOOE
     Indication: Migraine
  36. AIMOVIG [Concomitant]
     Active Substance: ERENUMAB-AOOE
  37. ALENDRONIC ACID [Concomitant]
     Active Substance: ALENDRONIC ACID
     Indication: Rheumatoid arthritis
     Route: 016
  38. ALENDRONIC ACID [Concomitant]
     Active Substance: ALENDRONIC ACID
  39. ALENDRONIC ACID [Concomitant]
     Active Substance: ALENDRONIC ACID
     Route: 048
  40. ALENDRONIC ACID [Concomitant]
     Active Substance: ALENDRONIC ACID
     Route: 048
  41. ALENDRONIC ACID [Concomitant]
     Active Substance: ALENDRONIC ACID
  42. ALENDRONIC ACID [Concomitant]
     Active Substance: ALENDRONIC ACID
     Route: 048
  43. ALENDRONIC ACID [Concomitant]
     Active Substance: ALENDRONIC ACID
  44. ALENDRONIC ACID [Concomitant]
     Active Substance: ALENDRONIC ACID
  45. LEFLUNOMIDE [Concomitant]
     Active Substance: LEFLUNOMIDE
     Indication: Rheumatoid arthritis
  46. LEFLUNOMIDE [Concomitant]
     Active Substance: LEFLUNOMIDE
     Route: 048
  47. LEFLUNOMIDE [Concomitant]
     Active Substance: LEFLUNOMIDE
  48. LEFLUNOMIDE [Concomitant]
     Active Substance: LEFLUNOMIDE
     Route: 048
  49. LEFLUNOMIDE [Concomitant]
     Active Substance: LEFLUNOMIDE
  50. PREDNISONE [Concomitant]
     Active Substance: PREDNISONE
     Indication: Rheumatoid arthritis
  51. PREDNISONE [Concomitant]
     Active Substance: PREDNISONE
  52. PREDNISONE [Concomitant]
     Active Substance: PREDNISONE
     Route: 048
  53. PREDNISONE [Concomitant]
     Active Substance: PREDNISONE
  54. PREDNISONE [Concomitant]
     Active Substance: PREDNISONE
     Route: 048
  55. PREDNISONE [Concomitant]
     Active Substance: PREDNISONE
     Route: 048
  56. PREDNISONE [Concomitant]
     Active Substance: PREDNISONE
     Route: 048
  57. PREDNISONE [Concomitant]
     Active Substance: PREDNISONE
  58. PREDNISONE [Concomitant]
     Active Substance: PREDNISONE
     Route: 048
  59. APREMILAST [Concomitant]
     Active Substance: APREMILAST
     Indication: Rheumatoid arthritis
  60. APREMILAST [Concomitant]
     Active Substance: APREMILAST
  61. ARAVA [Concomitant]
     Active Substance: LEFLUNOMIDE
     Indication: Rheumatoid arthritis
     Route: 048
  62. ARAVA [Concomitant]
     Active Substance: LEFLUNOMIDE
     Route: 048
  63. ARAVA [Concomitant]
     Active Substance: LEFLUNOMIDE
     Route: 048
  64. ARAVA [Concomitant]
     Active Substance: LEFLUNOMIDE
  65. ARAVA [Concomitant]
     Active Substance: LEFLUNOMIDE
  66. ARAVA [Concomitant]
     Active Substance: LEFLUNOMIDE
  67. ARAVA [Concomitant]
     Active Substance: LEFLUNOMIDE
     Route: 048
  68. AZATHIOPRINE SODIUM [Concomitant]
     Active Substance: AZATHIOPRINE SODIUM
     Indication: Rheumatoid arthritis
  69. BERINERT [Concomitant]
     Active Substance: HUMAN C1-ESTERASE INHIBITOR
     Indication: Product used for unknown indication
  70. BOTULINUM TOXIN TYPE A [Concomitant]
     Active Substance: BOTULINUM TOXIN TYPE A
     Indication: Product used for unknown indication
     Dosage: POWDER FOR SOLUTION
  71. BUTRANS [Concomitant]
     Active Substance: BUPRENORPHINE
     Indication: Product used for unknown indication
     Dosage: PATCH
  72. CANDESARTAN [Concomitant]
     Active Substance: CANDESARTAN
     Indication: Migraine
  73. CELEBREX [Concomitant]
     Active Substance: CELECOXIB
     Indication: Migraine
  74. CELEBREX [Concomitant]
     Active Substance: CELECOXIB
     Route: 048
  75. CERTOLIZUMAB PEGOL [Concomitant]
     Active Substance: CERTOLIZUMAB PEGOL
     Indication: Product used for unknown indication
  76. CERTOLIZUMAB PEGOL [Concomitant]
     Active Substance: CERTOLIZUMAB PEGOL
     Route: 058
  77. CERTOLIZUMAB PEGOL [Concomitant]
     Active Substance: CERTOLIZUMAB PEGOL
     Route: 058
  78. CERTOLIZUMAB PEGOL [Concomitant]
     Active Substance: CERTOLIZUMAB PEGOL
  79. CERTOLIZUMAB PEGOL [Concomitant]
     Active Substance: CERTOLIZUMAB PEGOL
     Route: 058
  80. CERTOLIZUMAB PEGOL [Concomitant]
     Active Substance: CERTOLIZUMAB PEGOL
  81. CETIRIZINE HYDROCHLORIDE [Concomitant]
     Active Substance: CETIRIZINE HYDROCHLORIDE
     Indication: Rheumatoid arthritis
  82. CETIRIZINE HYDROCHLORIDE [Concomitant]
     Active Substance: CETIRIZINE HYDROCHLORIDE
  83. CETIRIZINE HYDROCHLORIDE [Concomitant]
     Active Substance: CETIRIZINE HYDROCHLORIDE
  84. CETIRIZINE HYDROCHLORIDE [Concomitant]
     Active Substance: CETIRIZINE HYDROCHLORIDE
  85. CETIRIZINE HYDROCHLORIDE [Concomitant]
     Active Substance: CETIRIZINE HYDROCHLORIDE
  86. CETIRIZINE HYDROCHLORIDE [Concomitant]
     Active Substance: CETIRIZINE HYDROCHLORIDE
     Route: 048
  87. CETIRIZINE HYDROCHLORIDE [Concomitant]
     Active Substance: CETIRIZINE HYDROCHLORIDE
  88. CETIRIZINE HYDROCHLORIDE [Concomitant]
     Active Substance: CETIRIZINE HYDROCHLORIDE
  89. CETIRIZINE HYDROCHLORIDE [Concomitant]
     Active Substance: CETIRIZINE HYDROCHLORIDE
     Route: 048
  90. CETIRIZINE HYDROCHLORIDE [Concomitant]
     Active Substance: CETIRIZINE HYDROCHLORIDE
  91. CETIRIZINE HYDROCHLORIDE [Concomitant]
     Active Substance: CETIRIZINE HYDROCHLORIDE
  92. CETIRIZINE HYDROCHLORIDE [Concomitant]
     Active Substance: CETIRIZINE HYDROCHLORIDE
  93. CETIRIZINE HYDROCHLORIDE [Concomitant]
     Active Substance: CETIRIZINE HYDROCHLORIDE
  94. CETIRIZINE HYDROCHLORIDE [Concomitant]
     Active Substance: CETIRIZINE HYDROCHLORIDE
  95. CETIRIZINE HYDROCHLORIDE [Concomitant]
     Active Substance: CETIRIZINE HYDROCHLORIDE
  96. CETIRIZINE HYDROCHLORIDE [Concomitant]
     Active Substance: CETIRIZINE HYDROCHLORIDE
  97. CETIRIZINE HYDROCHLORIDE [Concomitant]
     Active Substance: CETIRIZINE HYDROCHLORIDE
  98. CETIRIZINE HYDROCHLORIDE [Concomitant]
     Active Substance: CETIRIZINE HYDROCHLORIDE
  99. CETIRIZINE HYDROCHLORIDE [Concomitant]
     Active Substance: CETIRIZINE HYDROCHLORIDE
     Route: 016
  100. CETIRIZINE HYDROCHLORIDE [Concomitant]
     Active Substance: CETIRIZINE HYDROCHLORIDE
     Route: 048
  101. CETIRIZINE HYDROCHLORIDE [Concomitant]
     Active Substance: CETIRIZINE HYDROCHLORIDE
  102. CETIRIZINE HYDROCHLORIDE [Concomitant]
     Active Substance: CETIRIZINE HYDROCHLORIDE
  103. CETIRIZINE HYDROCHLORIDE [Concomitant]
     Active Substance: CETIRIZINE HYDROCHLORIDE
  104. CETIRIZINE HYDROCHLORIDE [Concomitant]
     Active Substance: CETIRIZINE HYDROCHLORIDE
     Route: 048
  105. CETIRIZINE HYDROCHLORIDE [Concomitant]
     Active Substance: CETIRIZINE HYDROCHLORIDE
  106. CETIRIZINE HYDROCHLORIDE [Concomitant]
     Active Substance: CETIRIZINE HYDROCHLORIDE
  107. CETIRIZINE HYDROCHLORIDE [Concomitant]
     Active Substance: CETIRIZINE HYDROCHLORIDE
  108. CHLORHEXIDINE GLUCONATE [Concomitant]
     Active Substance: CHLORHEXIDINE GLUCONATE
     Indication: Product used for unknown indication
     Route: 061
  109. CHLORHEXIDINE GLUCONATE [Concomitant]
     Active Substance: CHLORHEXIDINE GLUCONATE
  110. CHLORHEXIDINE GLUCONATE [Concomitant]
     Active Substance: CHLORHEXIDINE GLUCONATE
  111. CHOLECALCIFEROL [Concomitant]
     Active Substance: CHOLECALCIFEROL
     Indication: Product used for unknown indication
  112. CIMZIA [Concomitant]
     Active Substance: CERTOLIZUMAB PEGOL
     Indication: Rheumatoid arthritis
     Route: 058
  113. CIMZIA [Concomitant]
     Active Substance: CERTOLIZUMAB PEGOL
     Indication: Psoriasis
     Route: 058
  114. CIMZIA [Concomitant]
     Active Substance: CERTOLIZUMAB PEGOL
     Route: 058
  115. CIMZIA [Concomitant]
     Active Substance: CERTOLIZUMAB PEGOL
  116. CIMZIA [Concomitant]
     Active Substance: CERTOLIZUMAB PEGOL
  117. CIMZIA [Concomitant]
     Active Substance: CERTOLIZUMAB PEGOL
  118. CIMZIA [Concomitant]
     Active Substance: CERTOLIZUMAB PEGOL
     Route: 058
  119. CIMZIA [Concomitant]
     Active Substance: CERTOLIZUMAB PEGOL
     Route: 058
  120. COSENTYX [Concomitant]
     Active Substance: SECUKINUMAB
     Indication: Rheumatoid arthritis
  121. COSENTYX [Concomitant]
     Active Substance: SECUKINUMAB
     Indication: Psoriatic arthropathy
  122. DESOXIMETASONE [Concomitant]
     Active Substance: DESOXIMETASONE
     Indication: Rheumatoid arthritis
  123. DESOXIMETASONE [Concomitant]
     Active Substance: DESOXIMETASONE
  124. DESOXIMETASONE [Concomitant]
     Active Substance: DESOXIMETASONE
  125. DESOXIMETASONE [Concomitant]
     Active Substance: DESOXIMETASONE
  126. DESOXIMETASONE [Concomitant]
     Active Substance: DESOXIMETASONE
  127. DESOXIMETASONE [Concomitant]
     Active Substance: DESOXIMETASONE
  128. DESOXIMETASONE [Concomitant]
     Active Substance: DESOXIMETASONE
     Route: 048
  129. DESOXIMETASONE [Concomitant]
     Active Substance: DESOXIMETASONE
     Route: 048
  130. DESOXIMETASONE [Concomitant]
     Active Substance: DESOXIMETASONE
     Route: 048
  131. DESOXIMETASONE [Concomitant]
     Active Substance: DESOXIMETASONE
  132. DESOXIMETASONE [Concomitant]
     Active Substance: DESOXIMETASONE
     Route: 048
  133. DESOXIMETASONE [Concomitant]
     Active Substance: DESOXIMETASONE
     Route: 048
  134. DESOXIMETASONE [Concomitant]
     Active Substance: DESOXIMETASONE
  135. DESOXIMETASONE [Concomitant]
     Active Substance: DESOXIMETASONE
     Route: 048
  136. DESOXIMETASONE [Concomitant]
     Active Substance: DESOXIMETASONE
     Route: 048
  137. DESOXIMETASONE [Concomitant]
     Active Substance: DESOXIMETASONE
     Route: 048
  138. DESOXIMETASONE [Concomitant]
     Active Substance: DESOXIMETASONE
  139. DICLOFENAC DIETHYLAMINE [Concomitant]
     Active Substance: DICLOFENAC DIETHYLAMINE
     Indication: Product used for unknown indication
  140. DICLOFENAC SODIUM [Concomitant]
     Active Substance: DICLOFENAC SODIUM
     Indication: Rheumatoid arthritis
     Route: 058
  141. DICLOFENAC SODIUM [Concomitant]
     Active Substance: DICLOFENAC SODIUM
  142. DICLOFENAC SODIUM [Concomitant]
     Active Substance: DICLOFENAC SODIUM
  143. DICLOFENAC SODIUM [Concomitant]
     Active Substance: DICLOFENAC SODIUM
  144. DOMPERIDONE MALEATE [Concomitant]
     Active Substance: DOMPERIDONE MALEATE
     Indication: Product used for unknown indication
  145. ENBREL [Concomitant]
     Active Substance: ETANERCEPT
     Indication: Rheumatoid arthritis
     Route: 058
  146. ENBREL [Concomitant]
     Active Substance: ETANERCEPT
     Route: 058
  147. ENBREL [Concomitant]
     Active Substance: ETANERCEPT
  148. ENBREL [Concomitant]
     Active Substance: ETANERCEPT
  149. ENBREL [Concomitant]
     Active Substance: ETANERCEPT
     Route: 058
  150. ENBREL [Concomitant]
     Active Substance: ETANERCEPT
     Route: 058
  151. ENBREL [Concomitant]
     Active Substance: ETANERCEPT
     Route: 058
  152. ENBREL [Concomitant]
     Active Substance: ETANERCEPT
     Route: 058
  153. ENBREL [Concomitant]
     Active Substance: ETANERCEPT
     Route: 058
  154. ENBREL [Concomitant]
     Active Substance: ETANERCEPT
     Route: 058
  155. ENBREL [Concomitant]
     Active Substance: ETANERCEPT
  156. ENBREL [Concomitant]
     Active Substance: ETANERCEPT
  157. ERELZI [Concomitant]
     Active Substance: ETANERCEPT-SZZS
     Indication: Rheumatoid arthritis
     Route: 058
  158. ERELZI [Concomitant]
     Active Substance: ETANERCEPT-SZZS
  159. ERELZI [Concomitant]
     Active Substance: ETANERCEPT-SZZS
     Route: 058
  160. FLUMETHASONE [Concomitant]
     Active Substance: FLUMETHASONE
     Indication: Product used for unknown indication
  161. FLUMETHASONE PIVALATE [Concomitant]
     Active Substance: FLUMETHASONE PIVALATE
     Indication: Product used for unknown indication
  162. FLUMETHASONE PIVALATE [Concomitant]
     Active Substance: FLUMETHASONE PIVALATE
  163. FOLIC ACID [Concomitant]
     Active Substance: FOLIC ACID
     Indication: Rheumatoid arthritis
     Route: 048
  164. FOLIC ACID [Concomitant]
     Active Substance: FOLIC ACID
  165. FOLIC ACID [Concomitant]
     Active Substance: FOLIC ACID
  166. FOLIC ACID [Concomitant]
     Active Substance: FOLIC ACID
  167. FOLIC ACID [Concomitant]
     Active Substance: FOLIC ACID
     Route: 048
  168. FOLIC ACID [Concomitant]
     Active Substance: FOLIC ACID
  169. FOLIC ACID [Concomitant]
     Active Substance: FOLIC ACID
  170. FOLIC ACID [Concomitant]
     Active Substance: FOLIC ACID
  171. FOLIC ACID [Concomitant]
     Active Substance: FOLIC ACID
  172. FOLIC ACID [Concomitant]
     Active Substance: FOLIC ACID
     Route: 048
  173. FOLIC ACID [Concomitant]
     Active Substance: FOLIC ACID
  174. FOLIC ACID [Concomitant]
     Active Substance: FOLIC ACID
     Route: 048
  175. FOLIC ACID [Concomitant]
     Active Substance: FOLIC ACID
  176. FOLIC ACID [Concomitant]
     Active Substance: FOLIC ACID
  177. FOSAMAX [Concomitant]
     Active Substance: ALENDRONATE SODIUM
     Indication: Rheumatoid arthritis
  178. FOSAMAX [Concomitant]
     Active Substance: ALENDRONATE SODIUM
     Route: 048
  179. FOSAMAX [Concomitant]
     Active Substance: ALENDRONATE SODIUM
  180. FOSAMAX [Concomitant]
     Active Substance: ALENDRONATE SODIUM
     Route: 016
  181. FOSAMAX [Concomitant]
     Active Substance: ALENDRONATE SODIUM
  182. GOLD [Concomitant]
     Active Substance: GOLD
     Indication: Product used for unknown indication
  183. GOLD SODIUM THIOMALATE [Concomitant]
     Active Substance: GOLD SODIUM THIOMALATE
     Indication: Product used for unknown indication
  184. GOLIMUMAB [Concomitant]
     Active Substance: GOLIMUMAB
     Indication: Rheumatoid arthritis
  185. GOLIMUMAB [Concomitant]
     Active Substance: GOLIMUMAB
     Indication: Prostatic specific antigen
  186. GOLIMUMAB [Concomitant]
     Active Substance: GOLIMUMAB
     Route: 058
  187. GOLIMUMAB [Concomitant]
     Active Substance: GOLIMUMAB
     Route: 058
  188. HUMIRA [Concomitant]
     Active Substance: ADALIMUMAB
     Indication: Rheumatoid arthritis
  189. HUMIRA [Concomitant]
     Active Substance: ADALIMUMAB
  190. HUMIRA [Concomitant]
     Active Substance: ADALIMUMAB
     Route: 058
  191. HUMIRA [Concomitant]
     Active Substance: ADALIMUMAB
     Route: 058
  192. HUMIRA [Concomitant]
     Active Substance: ADALIMUMAB
     Route: 058
  193. HUMIRA [Concomitant]
     Active Substance: ADALIMUMAB
     Route: 058
  194. HYDROXYCHLOROQUINE [Concomitant]
     Active Substance: HYDROXYCHLOROQUINE
     Indication: Rheumatoid arthritis
     Route: 048
  195. HYDROXYCHLOROQUINE [Concomitant]
     Active Substance: HYDROXYCHLOROQUINE
     Route: 048
  196. HYDROXYCHLOROQUINE [Concomitant]
     Active Substance: HYDROXYCHLOROQUINE
     Route: 048
  197. HYDROXYCHLOROQUINE [Concomitant]
     Active Substance: HYDROXYCHLOROQUINE
     Route: 058
  198. HYDROXYCHLOROQUINE [Concomitant]
     Active Substance: HYDROXYCHLOROQUINE
     Route: 048
  199. HYDROXYCHLOROQUINE [Concomitant]
     Active Substance: HYDROXYCHLOROQUINE
  200. HYDROXYCHLOROQUINE [Concomitant]
     Active Substance: HYDROXYCHLOROQUINE
  201. HYDROXYCHLOROQUINE [Concomitant]
     Active Substance: HYDROXYCHLOROQUINE
     Route: 048
  202. HYDROXYCHLOROQUINE [Concomitant]
     Active Substance: HYDROXYCHLOROQUINE
  203. HYDROXYCHLOROQUINE [Concomitant]
     Active Substance: HYDROXYCHLOROQUINE
  204. HYDROXYCHLOROQUINE [Concomitant]
     Active Substance: HYDROXYCHLOROQUINE
     Route: 048
  205. HYDROXYCHLOROQUINE [Concomitant]
     Active Substance: HYDROXYCHLOROQUINE
  206. HYDROXYCHLOROQUINE [Concomitant]
     Active Substance: HYDROXYCHLOROQUINE
  207. HYDROXYCHLOROQUINE [Concomitant]
     Active Substance: HYDROXYCHLOROQUINE
  208. HYDROXYCHLOROQUINE [Concomitant]
     Active Substance: HYDROXYCHLOROQUINE
     Route: 016
  209. HYDROXYCHLOROQUINE [Concomitant]
     Active Substance: HYDROXYCHLOROQUINE
  210. HYDROXYCHLOROQUINE [Concomitant]
     Active Substance: HYDROXYCHLOROQUINE
     Route: 048
  211. HYDROXYCHLOROQUINE [Concomitant]
     Active Substance: HYDROXYCHLOROQUINE
     Route: 048
  212. HYDROXYCHLOROQUINE [Concomitant]
     Active Substance: HYDROXYCHLOROQUINE
  213. HYDROXYCHLOROQUINE SULFATE [Concomitant]
     Active Substance: HYDROXYCHLOROQUINE SULFATE
     Indication: Rheumatoid arthritis
  214. HYDROXYCHLOROQUINE SULFATE [Concomitant]
     Active Substance: HYDROXYCHLOROQUINE SULFATE
  215. HYDROXYCHLOROQUINE SULFATE [Concomitant]
     Active Substance: HYDROXYCHLOROQUINE SULFATE
  216. HYDROXYCHLOROQUINE SULFATE [Concomitant]
     Active Substance: HYDROXYCHLOROQUINE SULFATE
     Route: 048
  217. HYDROXYCHLOROQUINE SULFATE [Concomitant]
     Active Substance: HYDROXYCHLOROQUINE SULFATE
  218. HYDROXYCHLOROQUINE SULFATE [Concomitant]
     Active Substance: HYDROXYCHLOROQUINE SULFATE
  219. HYDROXYCHLOROQUINE SULFATE [Concomitant]
     Active Substance: HYDROXYCHLOROQUINE SULFATE
     Route: 048
  220. HYDROXYCHLOROQUINE SULFATE [Concomitant]
     Active Substance: HYDROXYCHLOROQUINE SULFATE
     Route: 048
  221. HYDROXYCHLOROQUINE SULFATE [Concomitant]
     Active Substance: HYDROXYCHLOROQUINE SULFATE
  222. INFLIXIMAB [Concomitant]
     Active Substance: INFLIXIMAB
     Indication: Rheumatoid arthritis
     Route: 042
  223. INFLIXIMAB [Concomitant]
     Active Substance: INFLIXIMAB
     Route: 042
  224. INFLIXIMAB [Concomitant]
     Active Substance: INFLIXIMAB
  225. INFLIXIMAB [Concomitant]
     Active Substance: INFLIXIMAB
     Route: 042
  226. INFLIXIMAB [Concomitant]
     Active Substance: INFLIXIMAB
     Route: 042
  227. INFLIXIMAB [Concomitant]
     Active Substance: INFLIXIMAB
  228. LAMICTAL [Concomitant]
     Active Substance: LAMOTRIGINE
     Indication: Product used for unknown indication
     Route: 048
  229. LAMICTAL [Concomitant]
     Active Substance: LAMOTRIGINE
     Route: 048
  230. LAMICTAL [Concomitant]
     Active Substance: LAMOTRIGINE
     Route: 048
  231. LAMICTAL [Concomitant]
     Active Substance: LAMOTRIGINE
     Route: 048
  232. LAMICTAL [Concomitant]
     Active Substance: LAMOTRIGINE
     Route: 048
  233. LAMICTAL [Concomitant]
     Active Substance: LAMOTRIGINE
     Route: 048
  234. LEFLUNOMIDE [Concomitant]
     Active Substance: LEFLUNOMIDE
     Indication: Rheumatoid arthritis
  235. LEFLUNOMIDE [Concomitant]
     Active Substance: LEFLUNOMIDE
  236. LEFLUNOMIDE [Concomitant]
     Active Substance: LEFLUNOMIDE
     Route: 048
  237. LEFLUNOMIDE [Concomitant]
     Active Substance: LEFLUNOMIDE
  238. LEFLUNOMIDE [Concomitant]
     Active Substance: LEFLUNOMIDE
     Route: 048
  239. LEFLUNOMIDE [Concomitant]
     Active Substance: LEFLUNOMIDE
  240. MEGLUMINE [Concomitant]
     Active Substance: MEGLUMINE
     Indication: Rheumatoid arthritis
     Route: 042
  241. MEGLUMINE [Concomitant]
     Active Substance: MEGLUMINE
     Route: 040
  242. METHOTREXATE [Concomitant]
     Active Substance: METHOTREXATE
     Indication: Rheumatoid arthritis
  243. METHOTREXATE [Concomitant]
     Active Substance: METHOTREXATE
     Route: 048
  244. METHOTREXATE [Concomitant]
     Active Substance: METHOTREXATE
  245. METHOTREXATE [Concomitant]
     Active Substance: METHOTREXATE
     Route: 058
  246. METHOTREXATE [Concomitant]
     Active Substance: METHOTREXATE
     Route: 048
  247. METHOTREXATE [Concomitant]
     Active Substance: METHOTREXATE
     Route: 013
  248. METHOTREXATE [Concomitant]
     Active Substance: METHOTREXATE
  249. METHOTREXATE [Concomitant]
     Active Substance: METHOTREXATE
  250. METHOTREXATE [Concomitant]
     Active Substance: METHOTREXATE
     Route: 013
  251. METHOTREXATE [Concomitant]
     Active Substance: METHOTREXATE
     Route: 048
  252. METHOTREXATE [Concomitant]
     Active Substance: METHOTREXATE
  253. METHOTREXATE [Concomitant]
     Active Substance: METHOTREXATE
     Route: 048
  254. METHOTREXATE [Concomitant]
     Active Substance: METHOTREXATE
     Route: 048
  255. METHOTREXATE [Concomitant]
     Active Substance: METHOTREXATE
     Route: 048
  256. METHOTREXATE [Concomitant]
     Active Substance: METHOTREXATE
  257. METHOTREXATE [Concomitant]
     Active Substance: METHOTREXATE
     Route: 048
  258. METHOTREXATE [Concomitant]
     Active Substance: METHOTREXATE
     Route: 058
  259. METHOTREXATE [Concomitant]
     Active Substance: METHOTREXATE
  260. METHOTREXATE [Concomitant]
     Active Substance: METHOTREXATE
     Route: 048
  261. METHOTREXATE [Concomitant]
     Active Substance: METHOTREXATE
  262. METHOTREXATE [Concomitant]
     Active Substance: METHOTREXATE
     Route: 016
  263. METHOTREXATE [Concomitant]
     Active Substance: METHOTREXATE
     Route: 048
  264. METHYLPREDNISOLONE [Concomitant]
     Active Substance: METHYLPREDNISOLONE
     Indication: Rheumatoid arthritis
  265. METHYLPREDNISOLONE SODIUM SUCCINATE [Concomitant]
     Active Substance: METHYLPREDNISOLONE SODIUM SUCCINATE
     Indication: Rheumatoid arthritis
  266. MINOCYCLINE HYDROCHLORIDE [Concomitant]
     Active Substance: MINOCYCLINE HYDROCHLORIDE
     Indication: Rheumatoid arthritis
  267. MINOCYCLINE HYDROCHLORIDE [Concomitant]
     Active Substance: MINOCYCLINE HYDROCHLORIDE
  268. MYOCHRYSINE [Concomitant]
     Active Substance: GOLD SODIUM THIOMALATE
     Indication: Rheumatoid arthritis
     Route: 030
  269. MYRBETRIQ [Concomitant]
     Active Substance: MIRABEGRON
     Indication: Rheumatoid arthritis
  270. MYRBETRIQ [Concomitant]
     Active Substance: MIRABEGRON
  271. MYRBETRIQ [Concomitant]
     Active Substance: MIRABEGRON
  272. NAPROXEN [Concomitant]
     Active Substance: NAPROXEN
     Indication: Product used for unknown indication
  273. NAPROXEN SODIUM [Concomitant]
     Active Substance: NAPROXEN SODIUM
     Indication: Rheumatoid arthritis
  274. NUCALA [Concomitant]
     Active Substance: MEPOLIZUMAB
     Indication: Product used for unknown indication
  275. OXYCODONE [Concomitant]
     Active Substance: OXYCODONE
     Indication: Product used for unknown indication
  276. OXYCODONE TEREPHTHALATE [Concomitant]
     Active Substance: OXYCODONE TEREPHTHALATE
     Indication: Product used for unknown indication
  277. PHENYLEPHRINE HYDROCHLORIDE [Concomitant]
     Active Substance: PHENYLEPHRINE HYDROCHLORIDE
     Indication: Rheumatoid arthritis
  278. PHTHALYLSULFATHIAZOLE [Concomitant]
     Active Substance: PHTHALYLSULFATHIAZOLE
     Indication: Product used for unknown indication
  279. PHTHALYLSULFATHIAZOLE [Concomitant]
     Active Substance: PHTHALYLSULFATHIAZOLE
     Route: 048
  280. PHTHALYLSULFATHIAZOLE [Concomitant]
     Active Substance: PHTHALYLSULFATHIAZOLE
  281. PHTHALYLSULFATHIAZOLE [Concomitant]
     Active Substance: PHTHALYLSULFATHIAZOLE
     Route: 042
  282. PHTHALYLSULFATHIAZOLE [Concomitant]
     Active Substance: PHTHALYLSULFATHIAZOLE
     Route: 058
  283. PHTHALYLSULFATHIAZOLE [Concomitant]
     Active Substance: PHTHALYLSULFATHIAZOLE
     Route: 048
  284. PHTHALYLSULFATHIAZOLE [Concomitant]
     Active Substance: PHTHALYLSULFATHIAZOLE
  285. PHTHALYLSULFATHIAZOLE [Concomitant]
     Active Substance: PHTHALYLSULFATHIAZOLE
  286. PREDNISONE [Concomitant]
     Active Substance: PREDNISONE
     Indication: Rheumatoid arthritis
     Route: 048
  287. PREDNISONE [Concomitant]
     Active Substance: PREDNISONE
     Route: 048
  288. PREDNISONE [Concomitant]
     Active Substance: PREDNISONE
  289. PREDNISONE [Concomitant]
     Active Substance: PREDNISONE
  290. PREDNISONE [Concomitant]
     Active Substance: PREDNISONE
  291. PREDNISONE [Concomitant]
     Active Substance: PREDNISONE
  292. PREDNISONE [Concomitant]
     Active Substance: PREDNISONE
  293. PREDNISONE [Concomitant]
     Active Substance: PREDNISONE
     Route: 048
  294. PREDNISONE [Concomitant]
     Active Substance: PREDNISONE
     Route: 048
  295. PREDNISONE [Concomitant]
     Active Substance: PREDNISONE
     Route: 048
  296. PSEUDOEPHEDRINE HYDROCHLORIDE [Concomitant]
     Active Substance: PSEUDOEPHEDRINE HYDROCHLORIDE
     Indication: Rheumatoid arthritis
  297. PSEUDOEPHEDRINE HYDROCHLORIDE [Concomitant]
     Active Substance: PSEUDOEPHEDRINE HYDROCHLORIDE
  298. PSEUDOEPHEDRINE HYDROCHLORIDE [Concomitant]
     Active Substance: PSEUDOEPHEDRINE HYDROCHLORIDE
  299. PSEUDOEPHEDRINE HYDROCHLORIDE [Concomitant]
     Active Substance: PSEUDOEPHEDRINE HYDROCHLORIDE
  300. RAMIPRIL [Concomitant]
     Active Substance: RAMIPRIL
     Indication: Rheumatoid arthritis
     Route: 042
  301. RAMIPRIL [Concomitant]
     Active Substance: RAMIPRIL
  302. RAMIPRIL [Concomitant]
     Active Substance: RAMIPRIL
     Route: 016
  303. RANITIDINE HYDROCHLORIDE [Concomitant]
     Active Substance: RANITIDINE HYDROCHLORIDE
     Indication: Product used for unknown indication
  304. CETIRIZINE HYDROCHLORIDE\PSEUDOEPHEDRINE HYDROCHLORIDE [Concomitant]
     Active Substance: CETIRIZINE HYDROCHLORIDE\PSEUDOEPHEDRINE HYDROCHLORIDE
     Indication: Rheumatoid arthritis
  305. CETIRIZINE HYDROCHLORIDE\PSEUDOEPHEDRINE HYDROCHLORIDE [Concomitant]
     Active Substance: CETIRIZINE HYDROCHLORIDE\PSEUDOEPHEDRINE HYDROCHLORIDE
  306. CETIRIZINE HYDROCHLORIDE\PSEUDOEPHEDRINE HYDROCHLORIDE [Concomitant]
     Active Substance: CETIRIZINE HYDROCHLORIDE\PSEUDOEPHEDRINE HYDROCHLORIDE
  307. CETIRIZINE HYDROCHLORIDE\PSEUDOEPHEDRINE HYDROCHLORIDE [Concomitant]
     Active Substance: CETIRIZINE HYDROCHLORIDE\PSEUDOEPHEDRINE HYDROCHLORIDE
  308. CETIRIZINE HYDROCHLORIDE\PSEUDOEPHEDRINE HYDROCHLORIDE [Concomitant]
     Active Substance: CETIRIZINE HYDROCHLORIDE\PSEUDOEPHEDRINE HYDROCHLORIDE
     Dosage: ER
  309. CETIRIZINE HYDROCHLORIDE\PSEUDOEPHEDRINE HYDROCHLORIDE [Concomitant]
     Active Substance: CETIRIZINE HYDROCHLORIDE\PSEUDOEPHEDRINE HYDROCHLORIDE
     Route: 042
  310. CETIRIZINE HYDROCHLORIDE\PSEUDOEPHEDRINE HYDROCHLORIDE [Concomitant]
     Active Substance: CETIRIZINE HYDROCHLORIDE\PSEUDOEPHEDRINE HYDROCHLORIDE
  311. REMICADE [Concomitant]
     Active Substance: INFLIXIMAB
     Indication: Rheumatoid arthritis
     Dosage: POW
     Route: 042
  312. REMICADE [Concomitant]
     Active Substance: INFLIXIMAB
     Route: 058
  313. REMICADE [Concomitant]
     Active Substance: INFLIXIMAB
     Route: 042
  314. REMICADE [Concomitant]
     Active Substance: INFLIXIMAB
     Route: 042
  315. REMICADE [Concomitant]
     Active Substance: INFLIXIMAB
     Route: 042
  316. REMICADE [Concomitant]
     Active Substance: INFLIXIMAB
     Route: 042
  317. REMICADE [Concomitant]
     Active Substance: INFLIXIMAB
     Route: 058
  318. REMICADE [Concomitant]
     Active Substance: INFLIXIMAB
  319. SULFASALAZINE [Concomitant]
     Active Substance: SULFASALAZINE
     Indication: Rheumatoid arthritis
  320. SIMPONI [Concomitant]
     Active Substance: GOLIMUMAB
     Indication: Rheumatoid arthritis
     Route: 058
  321. SIMPONI [Concomitant]
     Active Substance: GOLIMUMAB
  322. SIMPONI [Concomitant]
     Active Substance: GOLIMUMAB
  323. SIMPONI [Concomitant]
     Active Substance: GOLIMUMAB
  324. SIMPONI [Concomitant]
     Active Substance: GOLIMUMAB
     Route: 058
  325. SIRUKUMAB [Concomitant]
     Active Substance: SIRUKUMAB
     Indication: Product used for unknown indication
  326. SIRUKUMAB [Concomitant]
     Active Substance: SIRUKUMAB
  327. GOLD SODIUM THIOMALATE [Concomitant]
     Active Substance: GOLD SODIUM THIOMALATE
     Indication: Product used for unknown indication
  328. GOLD SODIUM THIOMALATE [Concomitant]
     Active Substance: GOLD SODIUM THIOMALATE
     Route: 048
  329. GOLD SODIUM THIOMALATE [Concomitant]
     Active Substance: GOLD SODIUM THIOMALATE
  330. STELARA [Concomitant]
     Active Substance: USTEKINUMAB
     Indication: Rheumatoid arthritis
     Route: 058
  331. STELARA [Concomitant]
     Active Substance: USTEKINUMAB
  332. SULFASALAZINE [Concomitant]
     Active Substance: SULFASALAZINE
     Indication: Rheumatoid arthritis
     Route: 048
  333. SULFASALAZINE [Concomitant]
     Active Substance: SULFASALAZINE
     Route: 048
  334. SULFASALAZINE [Concomitant]
     Active Substance: SULFASALAZINE
     Route: 048
  335. SULFASALAZINE [Concomitant]
     Active Substance: SULFASALAZINE
     Route: 058
  336. SULFASALAZINE [Concomitant]
     Active Substance: SULFASALAZINE
  337. SULFASALAZINE [Concomitant]
     Active Substance: SULFASALAZINE
  338. SULFASALAZINE [Concomitant]
     Active Substance: SULFASALAZINE
  339. SULFASALAZINE [Concomitant]
     Active Substance: SULFASALAZINE
     Route: 058
  340. SULFASALAZINE [Concomitant]
     Active Substance: SULFASALAZINE
     Route: 058
  341. SULFASALAZINE [Concomitant]
     Active Substance: SULFASALAZINE
     Route: 058
  342. SULFASALAZINE [Concomitant]
     Active Substance: SULFASALAZINE
     Route: 048
  343. SULFASALAZINE [Concomitant]
     Active Substance: SULFASALAZINE
  344. SULFASALAZINE [Concomitant]
     Active Substance: SULFASALAZINE
  345. SULFASALAZINE [Concomitant]
     Active Substance: SULFASALAZINE
     Route: 058
  346. SULFASALAZINE [Concomitant]
     Active Substance: SULFASALAZINE
  347. SULFASALAZINE [Concomitant]
     Active Substance: SULFASALAZINE
     Route: 048
  348. SULFASALAZINE [Concomitant]
     Active Substance: SULFASALAZINE
  349. SULFASALAZINE [Concomitant]
     Active Substance: SULFASALAZINE
     Route: 058
  350. SULFASALAZINE [Concomitant]
     Active Substance: SULFASALAZINE
  351. SULFASALAZINE [Concomitant]
     Active Substance: SULFASALAZINE
     Route: 048
  352. SULFASALAZINE [Concomitant]
     Active Substance: SULFASALAZINE
     Route: 048
  353. SULFASALAZINE [Concomitant]
     Active Substance: SULFASALAZINE
     Route: 016
  354. SULFASALAZINE [Concomitant]
     Active Substance: SULFASALAZINE
     Route: 048
  355. SULFASALAZINE [Concomitant]
     Active Substance: SULFASALAZINE
     Route: 058
  356. TETRACYCLINE HYDROCHLORIDE [Concomitant]
     Active Substance: TETRACYCLINE HYDROCHLORIDE
     Indication: Rheumatoid arthritis
     Route: 048
  357. TETRACYCLINE HYDROCHLORIDE [Concomitant]
     Active Substance: TETRACYCLINE HYDROCHLORIDE
  358. TOCILIZUMAB [Concomitant]
     Active Substance: TOCILIZUMAB
     Indication: Rheumatoid arthritis
  359. TOCILIZUMAB [Concomitant]
     Active Substance: TOCILIZUMAB
     Route: 042
  360. TOCILIZUMAB [Concomitant]
     Active Substance: TOCILIZUMAB
  361. TOCILIZUMAB [Concomitant]
     Active Substance: TOCILIZUMAB
     Route: 058
  362. TOCILIZUMAB [Concomitant]
     Active Substance: TOCILIZUMAB
     Route: 042
  363. TOCILIZUMAB [Concomitant]
     Active Substance: TOCILIZUMAB
     Route: 016
  364. TOCILIZUMAB [Concomitant]
     Active Substance: TOCILIZUMAB
     Route: 058
  365. TOFACITINIB CITRATE [Concomitant]
     Active Substance: TOFACITINIB CITRATE
     Indication: Rheumatoid arthritis
  366. TOFACITINIB CITRATE [Concomitant]
     Active Substance: TOFACITINIB CITRATE
  367. TOFACITINIB CITRATE [Concomitant]
     Active Substance: TOFACITINIB CITRATE
  368. TOPIRAMATE [Concomitant]
     Active Substance: TOPIRAMATE
     Indication: Rheumatoid arthritis
  369. TOPIRAMATE [Concomitant]
     Active Substance: TOPIRAMATE
  370. TOPIRAMATE [Concomitant]
     Active Substance: TOPIRAMATE
  371. TOPIRAMATE [Concomitant]
     Active Substance: TOPIRAMATE
  372. TRAMADOL HYDROCHLORIDE [Concomitant]
     Active Substance: TRAMADOL HYDROCHLORIDE
     Indication: Product used for unknown indication
  373. TRAMADOL HYDROCHLORIDE [Concomitant]
     Active Substance: TRAMADOL HYDROCHLORIDE
  374. USTEKINUMAB [Concomitant]
     Active Substance: USTEKINUMAB
     Indication: Product used for unknown indication
     Route: 058
  375. USTEKINUMAB [Concomitant]
     Active Substance: USTEKINUMAB
  376. USTEKINUMAB [Concomitant]
     Active Substance: USTEKINUMAB
     Route: 058
  377. XELJANZ [Concomitant]
     Active Substance: TOFACITINIB CITRATE
     Indication: Rheumatoid arthritis
     Route: 048
  378. XELJANZ [Concomitant]
     Active Substance: TOFACITINIB CITRATE
  379. XELJANZ [Concomitant]
     Active Substance: TOFACITINIB CITRATE
     Route: 048
  380. XELJANZ [Concomitant]
     Active Substance: TOFACITINIB CITRATE
  381. XELJANZ [Concomitant]
     Active Substance: TOFACITINIB CITRATE
  382. XELJANZ [Concomitant]
     Active Substance: TOFACITINIB CITRATE
  383. XELJANZ [Concomitant]
     Active Substance: TOFACITINIB CITRATE
  384. XELJANZ [Concomitant]
     Active Substance: TOFACITINIB CITRATE
     Route: 048

REACTIONS (1)
  - Death [Fatal]
